FAERS Safety Report 4462841-4 (Version None)
Quarter: 2004Q3

REPORT INFORMATION
  Report Type: 
  Country: None (occurrence: None)
  Receive Date: 20040927
  Receipt Date: 20040914
  Transmission Date: 20050211
  Serious: Yes (Hospitalization)
  Sender: FDA-Public Use
  Company Number: AZAUS200400040

PATIENT
  Age: 73 Year
  Sex: Male
  Weight: 73 kg

DRUGS (13)
  1. VIDAZA [Suspect]
     Indication: MYELODYSPLASTIC SYNDROME
     Dosage: 75 MG/M2 (138 MG, DAILY X 7DAYS)SUBCUTANEOUS
     Route: 058
     Dates: start: 20040702, end: 20040708
  2. LASIX [Concomitant]
  3. MEGACE [Concomitant]
  4. LEVAQUIN [Concomitant]
  5. EPOGEN [Concomitant]
  6. RENALCAL (OTHER COMBINATIONS OF NUTRIENTS) [Concomitant]
  7. BENADRYL [Concomitant]
  8. TYLENOL [Concomitant]
  9. LORAZEPAM [Concomitant]
  10. MORPHINE [Concomitant]
  11. METOCLOPRAMIDE [Concomitant]
  12. NITROGLYCERIN [Concomitant]
  13. ALBUTEROL [Concomitant]

REACTIONS (3)
  - CRYPTOGENIC ORGANIZING PNEUMONIA [None]
  - PATHOGEN RESISTANCE [None]
  - SPOROTRICHOSIS [None]
